FAERS Safety Report 15613781 (Version 4)
Quarter: 2018Q4

REPORT INFORMATION
  Report Type: Spontaneous
  Country: CA (occurrence: CA)
  Receive Date: 20181113
  Receipt Date: 20181218
  Transmission Date: 20190205
  Serious: Yes (Other)
  Sender: FDA-Public Use
  Company Number: CA-PFIZER INC-2018403923

PATIENT
  Age: 74 Year
  Sex: Female

DRUGS (2)
  1. COUMADIN [Concomitant]
     Active Substance: WARFARIN SODIUM
     Dosage: UNK
  2. XELJANZ [Suspect]
     Active Substance: TOFACITINIB CITRATE
     Indication: RHEUMATOID ARTHRITIS
     Dosage: 5 MG, TWICE DAILY
     Route: 048
     Dates: start: 20180917, end: 20180929

REACTIONS (8)
  - Ear pain [Unknown]
  - Clostridium difficile infection [Recovered/Resolved]
  - Oropharyngeal pain [Unknown]
  - Chest pain [Unknown]
  - Diarrhoea [Unknown]
  - Iron deficiency [Unknown]
  - Diarrhoea [Recovered/Resolved]
  - Anorectal discomfort [Unknown]

NARRATIVE: CASE EVENT DATE: 2018
